FAERS Safety Report 5869667-5 (Version None)
Quarter: 2008Q3

REPORT INFORMATION
  Report Type: 
  Country: None (occurrence: None)
  Receive Date: 20080904
  Receipt Date: 20080822
  Transmission Date: 20090109
  Serious: Yes (Other)
  Sender: FDA-Public Use
  Company Number: US-ELI_LILLY_AND_COMPANY-US200808004651

PATIENT
  Age: 55 Year
  Sex: Female

DRUGS (3)
  1. EVISTA [Suspect]
     Indication: BREAST CANCER
     Dosage: 60 MG, DAILY (1/D)
     Dates: start: 20060101
  2. LEXAPRO [Concomitant]
     Indication: ANXIETY
     Dosage: 10 MG, DAILY (1/D)
  3. VITAMIN TAB [Concomitant]

REACTIONS (4)
  - COLON CANCER [None]
  - DYSPEPSIA [None]
  - HOT FLUSH [None]
  - MUSCLE SPASMS [None]
